FAERS Safety Report 5548993-3 (Version None)
Quarter: 2007Q4

REPORT INFORMATION
  Report Type: 
  Country: None (occurrence: None)
  Receive Date: 20071211
  Receipt Date: 20071210
  Transmission Date: 20080405
  Serious: Yes (Other)
  Sender: FDA-Public Use
  Company Number: US-GENENTECH-249881

PATIENT
  Sex: Male
  Weight: 61.678 kg

DRUGS (1)
  1. RAPTIVA [Suspect]
     Indication: PSORIASIS
     Dosage: UNK, 1/WEEK
     Route: 058
     Dates: start: 20060801

REACTIONS (3)
  - CELLULITIS [None]
  - DIARRHOEA [None]
  - WEIGHT DECREASED [None]
